FAERS Safety Report 7611753-3 (Version None)
Quarter: 2011Q3

REPORT INFORMATION
  Report Type: 
  Country: None (occurrence: None)
  Receive Date: 20110715
  Receipt Date: 20110712
  Transmission Date: 20111222
  Serious: Yes (Death)
  Sender: FDA-Public Use
  Company Number: US-CELGENEUS-163-21880-11071251

PATIENT
  Sex: Male

DRUGS (18)
  1. ATARAX [Concomitant]
     Route: 065
  2. DEXAMETHASONE [Concomitant]
     Route: 065
  3. HYDROCODONE [Concomitant]
     Route: 065
  4. REVLIMID [Suspect]
     Dosage: 15 MILLIGRAM
     Route: 048
     Dates: start: 20110601, end: 20110601
  5. METFORMIN HCL [Concomitant]
     Route: 065
  6. REGLAN [Concomitant]
     Route: 065
  7. FAMOTIDINE [Concomitant]
     Route: 065
  8. DIGOXIN [Concomitant]
     Route: 065
  9. VELCADE [Concomitant]
     Route: 065
  10. LASIX [Concomitant]
     Route: 065
  11. LOVENOX [Concomitant]
     Route: 065
  12. ZOMETA [Concomitant]
     Route: 065
  13. AMIODARONE HCL [Concomitant]
     Route: 065
  14. LOMOTIL [Concomitant]
     Route: 065
  15. REVLIMID [Suspect]
     Indication: MULTIPLE MYELOMA
     Dosage: 25 MILLIGRAM
     Route: 048
     Dates: start: 20110301
  16. MEGACE [Concomitant]
     Route: 065
  17. METOPROLOL TARTRATE [Concomitant]
     Route: 065
  18. ZOFRAN [Concomitant]
     Route: 065

REACTIONS (1)
  - MULTIPLE MYELOMA [None]
